FAERS Safety Report 4274340-3 (Version None)
Quarter: 2004Q1

REPORT INFORMATION
  Report Type: 
  Country: None (occurrence: None)
  Receive Date: 20040115
  Receipt Date: 20040105
  Transmission Date: 20041129
  Serious: Yes (Death, Hospitalization)
  Sender: FDA-Public Use
  Company Number: K200400001

PATIENT
  Age: 69 Year
  Sex: Male

DRUGS (8)
  1. ALTACE [Suspect]
     Dosage: 2.5 MG , QD, ORAL
     Route: 048
     Dates: end: 20030101
  2. FUROSEMIDE [Suspect]
     Dosage: 1 U, QD, ORAL
     Route: 048
     Dates: end: 20030101
  3. SERETIDE (FLUTICASONE PROPIONATE, SALMETEROL)INHALANT [Concomitant]
  4. COMBIVENT (SALBUTAMOL SULFATE, IPRATROPIUM BROMIDE)INHALANT [Concomitant]
  5. PLAVIX [Concomitant]
  6. INIPOMP (PANTOPRAZOLE) [Concomitant]
  7. DI-ACTANE (NAFTIDROFURYL OXALATE)CAPSULE [Concomitant]
  8. OXYGEN (OXYGEN) [Concomitant]

REACTIONS (6)
  - ANOREXIA [None]
  - DEHYDRATION [None]
  - DIARRHOEA [None]
  - INTESTINAL ISCHAEMIA [None]
  - MESENTERIC OCCLUSION [None]
  - RENAL FAILURE ACUTE [None]
